FAERS Safety Report 10931572 (Version 1)
Quarter: 2015Q1

REPORT INFORMATION
  Report Type: Spontaneous
  Country: US (occurrence: US)
  Receive Date: 20150319
  Receipt Date: 20150319
  Transmission Date: 20150721
  Serious: No
  Sender: FDA-Public Use
  Company Number: US-TEVA-545902USA

PATIENT
  Sex: Male

DRUGS (5)
  1. AZILECT [Suspect]
     Active Substance: RASAGILINE MESYLATE
  2. ROPINIROLE. [Concomitant]
     Active Substance: ROPINIROLE
  3. LIPASE [Concomitant]
     Active Substance: LIPASE
  4. AMYLASE [Concomitant]
     Active Substance: AMYLASE
  5. AMANTADINE [Concomitant]
     Active Substance: AMANTADINE

REACTIONS (1)
  - Pancreatic enzymes increased [Unknown]
